FAERS Safety Report 21548559 (Version 10)
Quarter: 2023Q1

REPORT INFORMATION
  Report Type: Report from Study
  Country: US (occurrence: US)
  Receive Date: 20221103
  Receipt Date: 20230323
  Transmission Date: 20230417
  Serious: Yes (Hospitalization)
  Sender: FDA-Public Use
  Company Number: US-002147023-NVSC2022US247333

PATIENT
  Age: 56 Year
  Sex: Male
  Weight: 80 kg

DRUGS (31)
  1. SABATOLIMAB [Suspect]
     Active Substance: SABATOLIMAB
     Indication: Myelodysplastic syndrome
     Dosage: 800 MG
     Route: 042
     Dates: start: 20220725
  2. SILDENAFIL [Concomitant]
     Active Substance: SILDENAFIL
     Indication: Erectile dysfunction
     Dosage: UNK
     Route: 065
     Dates: start: 20210407
  3. VITAMIN C [Concomitant]
     Active Substance: ASCORBIC ACID
     Indication: Supplementation therapy
     Dosage: UNK
     Route: 065
     Dates: start: 20171129
  4. DOCUSATE SODIUM [Concomitant]
     Active Substance: DOCUSATE SODIUM
     Indication: Constipation
     Dosage: UNK
     Route: 065
     Dates: start: 20220817
  5. MIRALAX [Concomitant]
     Active Substance: POLYETHYLENE GLYCOL 3350
     Indication: Proctitis
     Dosage: UNK
     Route: 065
     Dates: start: 20220819
  6. VALACYCLOVIR [Concomitant]
     Active Substance: VALACYCLOVIR HYDROCHLORIDE
     Indication: Antiviral prophylaxis
     Dosage: UNK
     Route: 065
     Dates: start: 20220817
  7. LEVOFLOXACIN [Concomitant]
     Active Substance: LEVOFLOXACIN
     Indication: Infection prophylaxis
     Dosage: UNK
     Route: 065
     Dates: start: 20220901
  8. TAMSULOSIN [Concomitant]
     Active Substance: TAMSULOSIN
     Indication: Pollakiuria
     Dosage: UNK
     Route: 065
     Dates: start: 20220826
  9. ONDANSETRON [Concomitant]
     Active Substance: ONDANSETRON
     Indication: Vomiting
     Dosage: UNK
     Route: 065
     Dates: start: 20220722
  10. ONDANSETRON [Concomitant]
     Active Substance: ONDANSETRON
     Indication: Nausea
  11. CYCLOBENZAPRINE [Concomitant]
     Active Substance: CYCLOBENZAPRINE
     Indication: Arthralgia
     Dosage: UNK
     Route: 065
     Dates: start: 20220805
  12. HYDROCHLOROTHIAZIDE [Concomitant]
     Active Substance: HYDROCHLOROTHIAZIDE
     Indication: Hypertension
     Dosage: UNK
     Route: 065
     Dates: start: 20220825
  13. ROSUVASTATIN [Concomitant]
     Active Substance: ROSUVASTATIN
     Indication: Hyperlipidaemia
     Dosage: UNK
     Route: 065
     Dates: start: 20221007
  14. DEFERASIROX [Concomitant]
     Active Substance: DEFERASIROX
     Indication: Iron overload
     Dosage: UNK
     Route: 065
     Dates: start: 20220701, end: 20230126
  15. INSULIN DEGLUDEC [Concomitant]
     Active Substance: INSULIN DEGLUDEC
     Indication: Diabetes mellitus
     Dosage: UNK
     Route: 065
     Dates: start: 20221013, end: 20221112
  16. ENSURE [Concomitant]
     Active Substance: AMINO ACIDS\DEXTROSE\ELECTROLYTES NOS\SOYBEAN OIL\VITAMINS
     Indication: Weight decreased
     Dosage: UNK
     Route: 065
     Dates: start: 20221011
  17. AMBIEN [Concomitant]
     Active Substance: ZOLPIDEM TARTRATE
     Indication: Insomnia
     Dosage: UNK
     Route: 065
     Dates: start: 20221024, end: 20221119
  18. POTASSIUM CHLORIDE [Concomitant]
     Active Substance: POTASSIUM CHLORIDE
     Indication: Electrolyte substitution therapy
     Dosage: UNK
     Route: 065
     Dates: start: 20221014, end: 20221014
  19. POTASSIUM CHLORIDE [Concomitant]
     Active Substance: POTASSIUM CHLORIDE
     Indication: Hypokalaemia
     Dosage: UNK
     Route: 065
     Dates: start: 20221020, end: 20221020
  20. POTASSIUM CHLORIDE [Concomitant]
     Active Substance: POTASSIUM CHLORIDE
     Dosage: UNK
     Route: 065
     Dates: start: 20221024, end: 20221024
  21. METFORMIN [Concomitant]
     Active Substance: METFORMIN HYDROCHLORIDE
     Indication: Diabetes mellitus
     Dosage: UNK
     Route: 065
     Dates: start: 20171129
  22. METOPROLOL TARTRATE [Concomitant]
     Active Substance: METOPROLOL TARTRATE
     Indication: Hypertension
     Dosage: UNK
     Route: 065
     Dates: start: 20171129
  23. OLMESARTAN [Concomitant]
     Active Substance: OLMESARTAN
     Indication: Hypertension
     Dosage: UNK
     Route: 065
     Dates: start: 20220707, end: 20230125
  24. POSACONAZOLE [Concomitant]
     Active Substance: POSACONAZOLE
     Indication: Infection prophylaxis
     Dosage: UNK
     Route: 065
     Dates: start: 20220616
  25. VITAMIN E [Concomitant]
     Active Substance: .ALPHA.-TOCOPHEROL
     Indication: Supplementation therapy
     Dosage: UNK
     Route: 065
     Dates: start: 20190101
  26. ACYCLOVIR [Concomitant]
     Active Substance: ACYCLOVIR
     Indication: Antiviral prophylaxis
     Dosage: UNK
     Route: 065
     Dates: start: 20220613
  27. INSULIN LISPRO [Concomitant]
     Active Substance: INSULIN LISPRO
     Indication: Diabetes mellitus
     Dosage: UNK
     Route: 065
     Dates: start: 20220906
  28. OXYCODONE [Concomitant]
     Active Substance: OXYCODONE
     Indication: Proctalgia
     Dosage: UNK
     Route: 065
     Dates: start: 20220817, end: 20230125
  29. OXYCODONE [Concomitant]
     Active Substance: OXYCODONE
     Indication: Anal fissure
  30. TRAMADOL [Concomitant]
     Active Substance: TRAMADOL
     Indication: Headache
     Dosage: UNK
     Route: 065
     Dates: start: 20220719, end: 20221205
  31. TRAMADOL [Concomitant]
     Active Substance: TRAMADOL
     Indication: Proctalgia

REACTIONS (1)
  - Malaise [Recovered/Resolved]

NARRATIVE: CASE EVENT DATE: 20221028
